FAERS Safety Report 9581493 (Version 2)
Quarter: 2013Q4

REPORT INFORMATION
  Report Type: Spontaneous
  Country: SE (occurrence: SE)
  Receive Date: 20131002
  Receipt Date: 20131112
  Transmission Date: 20140711
  Serious: Yes (Other)
  Sender: FDA-Public Use
  Company Number: PHHY2013SE109616

PATIENT
  Age: 15 Year
  Sex: Male
  Weight: 71.2 kg

DRUGS (2)
  1. RITALINA [Suspect]
     Indication: ATTENTION DEFICIT/HYPERACTIVITY DISORDER
     Dosage: 40 MG, DAILY
     Route: 048
     Dates: start: 20100616
  2. RITALINA [Suspect]
     Dosage: 10 MG, UNK
     Route: 048
     Dates: start: 201209

REACTIONS (2)
  - Cyanosis [Not Recovered/Not Resolved]
  - Pigmentation disorder [Not Recovered/Not Resolved]
